FAERS Safety Report 10936306 (Version 1)
Quarter: 2015Q1

REPORT INFORMATION
  Report Type: Spontaneous
  Country: US (occurrence: None)
  Receive Date: 20150319
  Receipt Date: 20150319
  Transmission Date: 20150721
  Serious: Yes (Other)
  Sender: FDA-Public Use
  Company Number: None

PATIENT
  Age: 34 Year
  Sex: Female

DRUGS (1)
  1. OLANZAPINE 2.5 MG TABLETS [Suspect]
     Active Substance: OLANZAPINE
     Route: 048
     Dates: start: 20150219

REACTIONS (5)
  - Peripheral swelling [None]
  - Contusion [None]
  - Cognitive disorder [None]
  - Joint swelling [None]
  - Dizziness [None]

NARRATIVE: CASE EVENT DATE: 20150223
